FAERS Safety Report 20682196 (Version 1)
Quarter: 2022Q2

REPORT INFORMATION
  Report Type: Spontaneous
  Country: AT (occurrence: AT)
  Receive Date: 20220407
  Receipt Date: 20220407
  Transmission Date: 20220720
  Serious: Yes (Death, Hospitalization, Other)
  Sender: FDA-Public Use
  Company Number: AT-AMGEN-AUTSP2022055672

PATIENT
  Age: 71 Year
  Sex: Male

DRUGS (1)
  1. XGEVA [Suspect]
     Active Substance: DENOSUMAB
     Indication: Hypercalcaemia of malignancy
     Dosage: UNK
     Route: 065

REACTIONS (6)
  - Death [Fatal]
  - Haemophagocytic lymphohistiocytosis [Unknown]
  - Epstein-Barr virus infection [Unknown]
  - General physical health deterioration [Unknown]
  - Haemodynamic instability [Unknown]
  - Metabolic acidosis [Unknown]
